FAERS Safety Report 6180046-6 (Version None)
Quarter: 2009Q2

REPORT INFORMATION
  Report Type: 
  Country: None (occurrence: None)
  Receive Date: 20090501
  Receipt Date: 20090421
  Transmission Date: 20091009
  Serious: Yes (Hospitalization, Other)
  Sender: FDA-Public Use
  Company Number: TRP_06182_2009

PATIENT
  Age: 54 Year
  Sex: Male

DRUGS (2)
  1. RIBASPHERE [Suspect]
     Indication: HEPATITIS C
     Dosage: (DF ORAL)
     Route: 048
     Dates: start: 20090206
  2. PEG-INTRON [Suspect]
     Indication: HEPATITIS C
     Dosage: (DF SUBCUTANEOUS)
     Route: 058
     Dates: start: 20090206

REACTIONS (9)
  - ANAEMIA [None]
  - ANOREXIA [None]
  - DEHYDRATION [None]
  - DIARRHOEA [None]
  - HAEMORRHOIDAL HAEMORRHAGE [None]
  - PYREXIA [None]
  - RENAL DISORDER [None]
  - RENAL INJURY [None]
  - VOMITING [None]
